FAERS Safety Report 5079463-7 (Version None)
Quarter: 2006Q3

REPORT INFORMATION
  Report Type: 
  Country: None (occurrence: None)
  Receive Date: 20060814
  Receipt Date: 20060801
  Transmission Date: 20061208
  Serious: Yes (Other)
  Sender: FDA-Public Use
  Company Number: GB-ROCHE-458876

PATIENT
  Age: 36 Year
  Sex: Male

DRUGS (2)
  1. ACCUTANE [Suspect]
     Indication: ACNE
     Route: 065
     Dates: start: 20060303
  2. ANTIDEPRESSANT NOS [Concomitant]

REACTIONS (2)
  - DEPRESSION [None]
  - SCHIZOPHRENIA [None]
